FAERS Safety Report 7998000-8 (Version None)
Quarter: 2011Q4

REPORT INFORMATION
  Report Type: 
  Country: None (occurrence: None)
  Receive Date: 20111221
  Receipt Date: 20110531
  Transmission Date: 20120403
  Serious: No
  Sender: FDA-Public Use
  Company Number: US-GLAXOSMITHKLINE-A0874409A

PATIENT
  Age: 78 Year
  Sex: Female

DRUGS (5)
  1. TOPROL-XL [Concomitant]
  2. SYNTHROID [Concomitant]
  3. HYDROCHLOROTHIAZIDE [Concomitant]
  4. PLAVIX [Concomitant]
  5. LOVAZA [Suspect]
     Indication: BLOOD TRIGLYCERIDES INCREASED
     Dosage: 2CAP TWICE PER DAY
     Route: 048
     Dates: start: 20100201, end: 20100601

REACTIONS (5)
  - COUGH [None]
  - RHINORRHOEA [None]
  - WHEEZING [None]
  - INFLUENZA LIKE ILLNESS [None]
  - SNEEZING [None]
